FAERS Safety Report 25452660 (Version 2)
Quarter: 2025Q3

REPORT INFORMATION
  Report Type: Report from Study
  Country: CN (occurrence: CN)
  Receive Date: 20250618
  Receipt Date: 20250714
  Transmission Date: 20251021
  Serious: Yes (Hospitalization)
  Sender: MERCK SHARP & DOHME LLC
  Company Number: CN-009507513-2294083

PATIENT
  Age: 61 Year
  Sex: Male

DRUGS (14)
  1. PEMBROLIZUMAB [Suspect]
     Active Substance: PEMBROLIZUMAB
     Indication: Lung adenocarcinoma
     Dosage: C1D1
     Route: 042
     Dates: start: 20240724, end: 20240724
  2. PEMBROLIZUMAB [Suspect]
     Active Substance: PEMBROLIZUMAB
     Indication: Lung adenocarcinoma
     Dosage: C2D1
     Route: 042
     Dates: start: 20240814, end: 20240814
  3. PEMBROLIZUMAB [Suspect]
     Active Substance: PEMBROLIZUMAB
     Indication: Lung adenocarcinoma
     Dosage: C3D1
     Route: 042
     Dates: start: 20240905, end: 20240905
  4. PEMBROLIZUMAB [Suspect]
     Active Substance: PEMBROLIZUMAB
     Indication: Lung adenocarcinoma
     Dosage: C4D1
     Route: 042
     Dates: start: 20250102, end: 20250102
  5. PEMETREXED [Suspect]
     Active Substance: PEMETREXED
     Indication: Lung adenocarcinoma
     Dosage: C1D1
     Route: 042
     Dates: start: 20240724, end: 20240724
  6. PEMETREXED [Suspect]
     Active Substance: PEMETREXED
     Indication: Lung adenocarcinoma
     Dosage: C2D1
     Route: 042
     Dates: start: 20240814, end: 20240814
  7. PEMETREXED [Suspect]
     Active Substance: PEMETREXED
     Indication: Lung adenocarcinoma
     Dosage: C3D1
     Route: 042
     Dates: start: 20240905, end: 20240905
  8. PEMETREXED [Suspect]
     Active Substance: PEMETREXED
     Indication: Lung adenocarcinoma
     Dosage: C4D1
     Route: 042
     Dates: start: 20250102, end: 20250102
  9. CARBOPLATIN [Suspect]
     Active Substance: CARBOPLATIN
     Indication: Lung adenocarcinoma
     Dosage: C1D1
     Route: 042
     Dates: start: 20240724, end: 20240724
  10. CARBOPLATIN [Suspect]
     Active Substance: CARBOPLATIN
     Indication: Lung adenocarcinoma
     Dosage: C2D1
     Route: 042
     Dates: start: 20240814, end: 20240814
  11. CARBOPLATIN [Suspect]
     Active Substance: CARBOPLATIN
     Indication: Lung adenocarcinoma
     Dosage: C3D1
     Route: 042
     Dates: start: 20240905, end: 20240905
  12. CARBOPLATIN [Suspect]
     Active Substance: CARBOPLATIN
     Indication: Lung adenocarcinoma
     Dosage: C4D1
     Route: 042
     Dates: start: 20250102, end: 20250102
  13. OMEPRAZOLE [Concomitant]
     Active Substance: OMEPRAZOLE
  14. SILIBININ [Concomitant]
     Active Substance: SILIBININ

REACTIONS (2)
  - Alanine aminotransferase increased [Not Recovered/Not Resolved]
  - Alanine aminotransferase increased [Recovered/Resolved]

NARRATIVE: CASE EVENT DATE: 20241009
